FAERS Safety Report 9308484 (Version 4)
Quarter: 2018Q3

REPORT INFORMATION
  Report Type: Report from Study
  Country: DE (occurrence: DE)
  Receive Date: 20130524
  Receipt Date: 20180820
  Transmission Date: 20181010
  Serious: Yes (Other)
  Sender: FDA-Public Use
  Company Number: DE-ROCHE-1227183

PATIENT

DRUGS (1)
  1. RITUXIMAB. [Suspect]
     Active Substance: RITUXIMAB
     Indication: MYOPATHY
     Route: 042

REACTIONS (10)
  - Urinary tract infection [Unknown]
  - Cholecystitis [Unknown]
  - Bradycardia [Unknown]
  - Erysipelas [Unknown]
  - Herpes zoster [Unknown]
  - Infection [Unknown]
  - Pneumonia [Unknown]
  - Respiratory tract infection [Unknown]
  - Hypogammaglobulinaemia [Unknown]
  - Hypotension [Unknown]
